FAERS Safety Report 23289749 (Version 1)
Quarter: 2023Q4

REPORT INFORMATION
  Report Type: Report from Study
  Country: US (occurrence: US)
  Receive Date: 20231212
  Receipt Date: 20231212
  Transmission Date: 20240110
  Serious: Yes (Hospitalization, Other)
  Sender: FDA-Public Use
  Company Number: US-GILEAD-2023-0654729

PATIENT
  Age: 2 Decade
  Sex: Male

DRUGS (1)
  1. AXICABTAGENE CILOLEUCEL [Suspect]
     Active Substance: AXICABTAGENE CILOLEUCEL
     Indication: B-cell lymphoma
     Route: 065

REACTIONS (7)
  - Chronic graft versus host disease in eye [Unknown]
  - Graft versus host disease oral [Unknown]
  - Graft versus host disease in liver [Unknown]
  - Graft versus host disease in skin [Unknown]
  - Corneal epithelium defect [Unknown]
  - Symblepharon [Unknown]
  - Cytokine release syndrome [Unknown]
